FAERS Safety Report 15400337 (Version 1)
Quarter: 2018Q3

REPORT INFORMATION
  Report Type: Spontaneous
  Country: US (occurrence: US)
  Receive Date: 20180919
  Receipt Date: 20180919
  Transmission Date: 20181010
  Serious: No
  Sender: FDA-Public Use
  Company Number: US-TEVA-2017-US-832195

PATIENT
  Sex: Male

DRUGS (1)
  1. FLUOXETINE [Suspect]
     Active Substance: FLUOXETINE HYDROCHLORIDE
     Dates: start: 201710

REACTIONS (9)
  - Arthralgia [Unknown]
  - Hypoaesthesia [Unknown]
  - Pollakiuria [Unknown]
  - Libido decreased [Unknown]
  - Hyperhidrosis [Unknown]
  - Paraesthesia [Unknown]
  - Asthenia [Unknown]
  - Bone pain [Unknown]
  - Pain in extremity [Unknown]
